FAERS Safety Report 7878284-7 (Version None)
Quarter: 2011Q4

REPORT INFORMATION
  Report Type: 
  Country: None (occurrence: None)
  Receive Date: 20111101
  Receipt Date: 20111020
  Transmission Date: 20120403
  Serious: Yes (Hospitalization)
  Sender: FDA-Public Use
  Company Number: US-JNJFOC-20111010147

PATIENT
  Sex: Male
  Weight: 97.52 kg

DRUGS (3)
  1. REMICADE [Suspect]
     Indication: RHEUMATOID ARTHRITIS
     Route: 042
     Dates: start: 20110101
  2. PREDNISONE [Concomitant]
     Indication: RHEUMATOID ARTHRITIS
     Route: 048
  3. METHOTREXATE [Concomitant]
     Indication: RHEUMATOID ARTHRITIS
     Route: 048

REACTIONS (7)
  - IRRITABILITY [None]
  - BLOOD PRESSURE INCREASED [None]
  - CHOLECYSTITIS [None]
  - NERVOUSNESS [None]
  - SOMNOLENCE [None]
  - HEART RATE INCREASED [None]
  - WEIGHT INCREASED [None]
